FAERS Safety Report 5636375-5 (Version None)
Quarter: 2008Q1

REPORT INFORMATION
  Report Type: 
  Country: None (occurrence: None)
  Receive Date: 20080225
  Receipt Date: 20071115
  Transmission Date: 20080703
  Serious: No
  Sender: FDA-Public Use
  Company Number: A0691104A

PATIENT
  Sex: Female

DRUGS (2)
  1. VERAMYST [Suspect]
     Dates: start: 20071001
  2. FLONASE [Suspect]
     Dosage: 2SPR TWICE PER DAY
     Dates: start: 20071001

REACTIONS (7)
  - CONDITION AGGRAVATED [None]
  - DRUG EFFECT DECREASED [None]
  - DRUG INEFFECTIVE [None]
  - EYE PAIN [None]
  - FEELING ABNORMAL [None]
  - PHOTOPHOBIA [None]
  - SCINTILLATING SCOTOMA [None]
